FAERS Safety Report 9725363 (Version 2)
Quarter: 2014Q3

REPORT INFORMATION
  Report Type: Spontaneous
  Country: JP (occurrence: JP)
  Receive Date: 20131203
  Receipt Date: 20140723
  Transmission Date: 20150326
  Serious: Yes (Life-Threatening)
  Sender: FDA-Public Use
  Company Number: JP-AMGEN-JPNSP2013084550

PATIENT
  Age: 65 Year
  Sex: Male
  Weight: 72.8 kg

DRUGS (3)
  1. VECTIBIX [Suspect]
     Active Substance: PANITUMUMAB
     Indication: RECTAL CANCER RECURRENT
     Dosage: 430 MG, Q2WEEKS
     Route: 041
     Dates: start: 20131122, end: 20131122
  2. DAIKENTYUTO [Concomitant]
     Active Substance: HERBALS
     Dosage: 5 G, UNK
     Route: 048
     Dates: start: 20050902
  3. MAGMITT [Concomitant]
     Active Substance: MAGNESIUM OXIDE
     Dosage: 500 MG, UNK
     Route: 048
     Dates: start: 20050902

REACTIONS (2)
  - Infusion related reaction [Recovered/Resolved]
  - Dermatitis acneiform [Unknown]

NARRATIVE: CASE EVENT DATE: 20131122
